FAERS Safety Report 23764487 (Version 1)
Quarter: 2024Q2

REPORT INFORMATION
  Report Type: Spontaneous
  Country: CH (occurrence: CH)
  Receive Date: 20240420
  Receipt Date: 20240420
  Transmission Date: 20240716
  Serious: Yes (Other)
  Sender: FDA-Public Use
  Company Number: CH-TEVA-VS-3183676

PATIENT
  Age: 21 Year
  Sex: Female

DRUGS (1)
  1. VENLAFAXINE [Suspect]
     Active Substance: VENLAFAXINE HYDROCHLORIDE
     Dosage: (ER) CAPSULES) , DAILY IN THE MORNING
     Route: 048

REACTIONS (5)
  - Electric shock sensation [Unknown]
  - Product dose omission in error [Unknown]
  - Irritable bowel syndrome [Unknown]
  - Product residue present [Unknown]
  - Diarrhoea [Unknown]
